FAERS Safety Report 13441081 (Version 2)
Quarter: 2017Q3

REPORT INFORMATION
  Report Type: Report from Study
  Country: None (occurrence: US)
  Receive Date: 20170413
  Receipt Date: 20170714
  Transmission Date: 20171127
  Serious: No
  Sender: FDA-Public Use
  Company Number: US-ABBVIE-17P-163-1942591-00

PATIENT
  Age: 44 Year
  Sex: Male
  Weight: 77.18 kg

DRUGS (4)
  1. VIEKIRA XR [Suspect]
     Active Substance: DASABUVIR SODIUM MONOHYDRATE\OMBITASVIR HEMINONAHYDRATE\PARITAPREVIR DIHYDRATE\RITONAVIR
     Route: 048
     Dates: start: 20170411
  2. MODERIBA [Suspect]
     Active Substance: RIBAVIRIN
     Dosage: 200 MG 3 PILLS IN THE AM AND 3 PILLS IN THE PM
     Route: 048
     Dates: start: 20170411
  3. VIEKIRA XR [Suspect]
     Active Substance: DASABUVIR SODIUM MONOHYDRATE\OMBITASVIR HEMINONAHYDRATE\PARITAPREVIR DIHYDRATE\RITONAVIR
     Indication: HEPATITIS C
     Route: 048
     Dates: start: 20170120, end: 20170408
  4. MODERIBA [Suspect]
     Active Substance: RIBAVIRIN
     Indication: HEPATITIS C
     Dosage: 200 MG 3 PILLS IN THE AM AND 3 PILLS IN THE PM
     Route: 048
     Dates: start: 20170120, end: 20170408

REACTIONS (6)
  - Vomiting [Not Recovered/Not Resolved]
  - Gastric ulcer [Not Recovered/Not Resolved]
  - Vomiting [Not Recovered/Not Resolved]
  - Retching [Not Recovered/Not Resolved]
  - Abdominal discomfort [Not Recovered/Not Resolved]
  - Nausea [Not Recovered/Not Resolved]

NARRATIVE: CASE EVENT DATE: 20170127
